FAERS Safety Report 24375274 (Version 1)
Quarter: 2024Q3

REPORT INFORMATION
  Report Type: Spontaneous
  Country: RU (occurrence: RU)
  Receive Date: 20240928
  Receipt Date: 20240928
  Transmission Date: 20241016
  Serious: Yes (Other)
  Sender: ROCHE
  Company Number: RU-ROCHE-10000087917

PATIENT
  Sex: Female

DRUGS (3)
  1. TRASTUZUMAB [Suspect]
     Active Substance: TRASTUZUMAB
     Indication: Product used for unknown indication
     Dosage: THIS THERAPY WAS CONDUCTED FROM JAN TO MAY/2021 FOR 6 CYCLES?ELEVEN CYCLES OF PERTUZUMAB+TRASTUZUMAB
     Route: 065
  2. PERTUZUMAB [Suspect]
     Active Substance: PERTUZUMAB
     Indication: Product used for unknown indication
     Dosage: THIS THERAPY WAS CONDUCTED FROM JAN TO MAY/2021 FOR 6 CYCLES?ELEVEN CYCLES OF PERTUZUMAB+TRASTUZUMAB
     Route: 065
  3. DOCETAXEL [Suspect]
     Active Substance: DOCETAXEL\DOCETAXEL ANHYDROUS
     Indication: Product used for unknown indication
     Dosage: THIS THERAPY WAS CONDUCTED FROM JAN TO MAY/2021 FOR 6 CYCLES
     Route: 065

REACTIONS (1)
  - Brain cancer metastatic [Unknown]
